FAERS Safety Report 6398405-5 (Version None)
Quarter: 2009Q4

REPORT INFORMATION
  Report Type: 
  Country: None (occurrence: None)
  Receive Date: 20091013
  Receipt Date: 20091009
  Transmission Date: 20100525
  Serious: Yes (Other)
  Sender: FDA-Public Use
  Company Number: US-RB-021419-09

PATIENT
  Age: 52 Year
  Sex: Male

DRUGS (3)
  1. SUBOXONE [Suspect]
     Indication: DRUG DEPENDENCE
     Route: 065
     Dates: start: 20080701, end: 20080701
  2. SUBOXONE [Suspect]
     Route: 065
     Dates: start: 20080701
  3. SUBOXONE [Suspect]
     Route: 065

REACTIONS (4)
  - DIPLOPIA [None]
  - DRUG WITHDRAWAL SYNDROME [None]
  - EUPHORIC MOOD [None]
  - LOSS OF CONSCIOUSNESS [None]
